FAERS Safety Report 9734605 (Version 2)
Quarter: 2013Q4

REPORT INFORMATION
  Report Type: Report from Study
  Country: US (occurrence: US)
  Receive Date: 20131206
  Receipt Date: 20131206
  Transmission Date: 20140711
  Serious: Yes (Other)
  Sender: FDA-Public Use
  Company Number: US-ROCHE-1228340

PATIENT
  Sex: Male
  Weight: 32.6 kg

DRUGS (2)
  1. NUTROPIN AQ [Suspect]
     Indication: GROWTH HORMONE DEFICIENCY
     Route: 058
     Dates: end: 20131022
  2. NUTROPIN AQ [Suspect]
     Route: 058
     Dates: start: 20131022

REACTIONS (4)
  - Asthma [Recovering/Resolving]
  - Crying [Recovered/Resolved with Sequelae]
  - Injection site erythema [Unknown]
  - Weight increased [Unknown]
